FAERS Safety Report 8573619-4 (Version None)
Quarter: 2012Q2

REPORT INFORMATION
  Report Type: 
  Country: None (occurrence: None)
  Receive Date: 20120423
  Receipt Date: 20100223
  Transmission Date: 20120825
  Serious: Yes (Other)
  Sender: FDA-Public Use
  Company Number: PHEH2009US17280

PATIENT
  Age: 5 Year
  Sex: Male
  Weight: 19.4 kg

DRUGS (12)
  1. ZYRTEC [Concomitant]
  2. FLOVENT [Concomitant]
  3. PENICILLIN [Concomitant]
  4. EXJADE [Suspect]
     Indication: IRON OVERLOAD
     Dosage: 375 MG DAILY, ORAL :250 MG DAILY, ORAL : 375 MG DAILY, ORAL
     Route: 048
     Dates: start: 20100113
  5. EXJADE [Suspect]
     Indication: SICKLE CELL ANAEMIA
     Dosage: 375 MG DAILY, ORAL :250 MG DAILY, ORAL : 375 MG DAILY, ORAL
     Route: 048
     Dates: start: 20100113
  6. EXJADE [Suspect]
     Indication: IRON OVERLOAD
     Dosage: 375 MG DAILY, ORAL :250 MG DAILY, ORAL : 375 MG DAILY, ORAL
     Route: 048
     Dates: start: 20091118, end: 20100113
  7. EXJADE [Suspect]
     Indication: SICKLE CELL ANAEMIA
     Dosage: 375 MG DAILY, ORAL :250 MG DAILY, ORAL : 375 MG DAILY, ORAL
     Route: 048
     Dates: start: 20091118, end: 20100113
  8. EXJADE [Suspect]
     Indication: IRON OVERLOAD
     Dosage: 375 MG DAILY, ORAL :250 MG DAILY, ORAL : 375 MG DAILY, ORAL
     Route: 048
     Dates: start: 20090815, end: 20091021
  9. EXJADE [Suspect]
     Indication: SICKLE CELL ANAEMIA
     Dosage: 375 MG DAILY, ORAL :250 MG DAILY, ORAL : 375 MG DAILY, ORAL
     Route: 048
     Dates: start: 20090815, end: 20091021
  10. SINGULAIR [Concomitant]
  11. ALBUTEROL [Concomitant]
  12. BLOOD TRANSFUSION, AUXILIARY PRODUCTS (NO INGREDIENTS/SUBSTANCES) [Concomitant]

REACTIONS (1)
  - LIVER FUNCTION TEST ABNORMAL [None]
